FAERS Safety Report 5345035-X (Version None)
Quarter: 2007Q2

REPORT INFORMATION
  Report Type: 
  Country: None (occurrence: None)
  Receive Date: 20070425
  Receipt Date: 20070118
  Transmission Date: 20071010
  Serious: Yes (Other)
  Sender: FDA-Public Use
  Company Number: 2006-BP-12184BP

PATIENT
  Sex: Male

DRUGS (5)
  1. FLOMAX [Suspect]
     Indication: BENIGN PROSTATIC HYPERPLASIA
     Dosage: 0.4 MG (0.4 MG,1 IN 1 D),PO
     Route: 048
     Dates: start: 20061004, end: 20061016
  2. DEPO-TESTOSTERONE [Suspect]
     Indication: BLOOD TESTOSTERONE DECREASED
     Dosage: SEE TEXT (Q WEEK),IM
     Route: 030
     Dates: start: 20050101
  3. TARGRETIN [Concomitant]
  4. TRICOR [Concomitant]
  5. LEVOTYROSINE (ALL OTHER THERAPEUTIC PRODUCTS) [Concomitant]

REACTIONS (2)
  - DRUG INEFFECTIVE [None]
  - PRIAPISM [None]
